FAERS Safety Report 12679897 (Version 1)
Quarter: 2016Q3

REPORT INFORMATION
  Report Type: Spontaneous
  Country: US (occurrence: None)
  Receive Date: 20160823
  Receipt Date: 20160823
  Transmission Date: 20161109
  Serious: Yes (Disabling)
  Sender: FDA-Public Use
  Company Number: None

PATIENT
  Age: 67 Year
  Sex: Female
  Weight: 55.79 kg

DRUGS (4)
  1. LEXAPRO [Concomitant]
     Active Substance: ESCITALOPRAM OXALATE
  2. SYNTHROID [Concomitant]
     Active Substance: LEVOTHYROXINE SODIUM
  3. LEVOTHYROXINE. [Suspect]
     Active Substance: LEVOTHYROXINE
     Indication: THYROID DISORDER
     Dosage: 1 PILL ONCE A DAY MOUTH
     Route: 048
     Dates: start: 20140120, end: 20140124
  4. VALIUM [Concomitant]
     Active Substance: DIAZEPAM

REACTIONS (2)
  - Gastritis [None]
  - Irritable bowel syndrome [None]

NARRATIVE: CASE EVENT DATE: 20140118
